FAERS Safety Report 6912395-5 (Version None)
Quarter: 2010Q3

REPORT INFORMATION
  Report Type: 
  Country: None (occurrence: None)
  Receive Date: 20100806
  Receipt Date: 20080422
  Transmission Date: 20110219
  Serious: No
  Sender: FDA-Public Use
  Company Number: US-PFIZER INC-2008036750

PATIENT
  Sex: Female

DRUGS (5)
  1. DILANTIN [Suspect]
  2. CYMBALTA [Concomitant]
  3. DIGITEK [Concomitant]
  4. ATENOLOL [Concomitant]
  5. FOSAMAX [Concomitant]

REACTIONS (3)
  - CRYING [None]
  - DEPRESSED MOOD [None]
  - EMOTIONAL DISORDER [None]
